FAERS Safety Report 18628796 (Version 1)
Quarter: 2020Q4

REPORT INFORMATION
  Report Type: Spontaneous
  Country: US (occurrence: US)
  Receive Date: 20201217
  Receipt Date: 20201217
  Transmission Date: 20210114
  Serious: No
  Sender: FDA-Public Use
  Company Number: US-PFIZER INC-2020497321

PATIENT

DRUGS (3)
  1. BINIMETINIB [Suspect]
     Active Substance: BINIMETINIB
     Dosage: 15 MG, 2X/DAY
  2. BINIMETINIB [Suspect]
     Active Substance: BINIMETINIB
     Indication: MALIGNANT MELANOMA
     Dosage: UNK
  3. ENCORAFENIB [Suspect]
     Active Substance: ENCORAFENIB
     Dosage: UNK

REACTIONS (4)
  - Pyrexia [Unknown]
  - Vision blurred [Unknown]
  - Chills [Unknown]
  - Off label use [Unknown]
